FAERS Safety Report 8366987-X (Version None)
Quarter: 2012Q2

REPORT INFORMATION
  Report Type: 
  Country: None (occurrence: None)
  Receive Date: 20120517
  Receipt Date: 20120507
  Transmission Date: 20120825
  Serious: Yes (Other)
  Sender: FDA-Public Use
  Company Number: ZA-ASTRAZENECA-2012SE28896

PATIENT
  Age: 19439 Day
  Sex: Female

DRUGS (2)
  1. VENTOLIN [Concomitant]
     Indication: BRONCHOSPASM
  2. SYMBICORT [Suspect]
     Indication: ASTHMA
     Dosage: 160/4.5, 2 DF BID
     Route: 055
     Dates: start: 20120502, end: 20120502

REACTIONS (1)
  - ASTHMA [None]
